FAERS Safety Report 25722374 (Version 1)
Quarter: 2025Q3

REPORT INFORMATION
  Report Type: Spontaneous
  Country: EU (occurrence: EU)
  Receive Date: 20250825
  Receipt Date: 20250825
  Transmission Date: 20251021
  Serious: Yes (Other)
  Sender: ELI LILLY AND COMPANY
  Company Number: EU-ELI_LILLY_AND_COMPANY-DE202508011941

PATIENT
  Age: 82 Year
  Sex: Female

DRUGS (4)
  1. JAYPIRCA [Suspect]
     Active Substance: PIRTOBRUTINIB
     Indication: Mantle cell lymphoma
     Route: 048
     Dates: start: 202412
  2. JAYPIRCA [Suspect]
     Active Substance: PIRTOBRUTINIB
     Indication: Chronic lymphocytic leukaemia
  3. RITUXIMAB [Concomitant]
     Active Substance: RITUXIMAB
     Indication: Product used for unknown indication
     Dates: start: 20250723
  4. TENOFOVIR ALAFENAMIDE [Concomitant]
     Active Substance: TENOFOVIR ALAFENAMIDE
     Indication: Product used for unknown indication
     Dates: start: 202506

REACTIONS (6)
  - White blood cell count increased [Unknown]
  - Tumour lysis syndrome [Unknown]
  - Haematocrit decreased [Unknown]
  - Blood alkaline phosphatase increased [Unknown]
  - Platelet count decreased [Unknown]
  - Haemoglobin decreased [Unknown]

NARRATIVE: CASE EVENT DATE: 20250601
